FAERS Safety Report 26023384 (Version 2)
Quarter: 2025Q4

REPORT INFORMATION
  Report Type: Spontaneous
  Country: JP (occurrence: JP)
  Receive Date: 20251110
  Receipt Date: 20251124
  Transmission Date: 20260119
  Serious: Yes (Other)
  Sender: ASTELLAS
  Company Number: JP-ASTELLAS-2025-AER-061370

PATIENT
  Sex: Male

DRUGS (3)
  1. XTANDI [Suspect]
     Active Substance: ENZALUTAMIDE
     Indication: Hormone-refractory prostate cancer
     Route: 048
     Dates: start: 20251008
  2. TALAZOPARIB [Suspect]
     Active Substance: TALAZOPARIB
     Indication: Product used for unknown indication
     Route: 065
  3. TALAZOPARIB [Suspect]
     Active Substance: TALAZOPARIB
     Dosage: DOSE REDUCED
     Route: 065

REACTIONS (1)
  - Platelet count decreased [Recovering/Resolving]

NARRATIVE: CASE EVENT DATE: 20251008
